FAERS Safety Report 7486213-3 (Version None)
Quarter: 2011Q2

REPORT INFORMATION
  Report Type: 
  Country: None (occurrence: None)
  Receive Date: 20110517
  Receipt Date: 20110125
  Transmission Date: 20111010
  Serious: No
  Sender: FDA-Public Use
  Company Number: A0909129A

PATIENT
  Age: 61 Year
  Sex: Female

DRUGS (2)
  1. PAZOPANIB [Suspect]
     Dosage: 800MG PER DAY
     Route: 048
     Dates: start: 20101201, end: 20110125
  2. NO CONCURRENT MEDICATION [Concomitant]

REACTIONS (5)
  - DIARRHOEA [None]
  - BLOOD PRESSURE INCREASED [None]
  - VOMITING [None]
  - DRUG INEFFECTIVE [None]
  - HEPATIC LESION [None]
